FAERS Safety Report 15325187 (Version 1)
Quarter: 2018Q3

REPORT INFORMATION
  Report Type: Report from Study
  Country: ES (occurrence: ES)
  Receive Date: 20180828
  Receipt Date: 20180828
  Transmission Date: 20181010
  Serious: Yes (Other)
  Sender: FDA-Public Use
  Company Number: ES-TEVA-2018-ES-947956

PATIENT
  Age: 19 Year
  Sex: Female

DRUGS (4)
  1. DEXKETOPROFENO (7312A) [Concomitant]
     Active Substance: DEXKETOPROFEN
     Indication: PAIN
     Route: 042
     Dates: start: 20170712, end: 20170719
  2. PARACETAMOL [Suspect]
     Active Substance: ACETAMINOPHEN
     Indication: PAIN
     Route: 042
     Dates: start: 20170712, end: 20170723
  3. PANTOPRAZOLE [Suspect]
     Active Substance: PANTOPRAZOLE
     Indication: PROPHYLAXIS
     Dosage: 40 MILLIGRAM DAILY;
     Route: 042
     Dates: start: 20170711, end: 20170723
  4. PIPERACILINA + TAZOBACTAM [Suspect]
     Active Substance: PIPERACILLIN SODIUM\TAZOBACTAM SODIUM
     Indication: SPLENECTOMY
     Route: 042
     Dates: start: 20170715, end: 20170722

REACTIONS (1)
  - Eosinophilia [Recovered/Resolved]

NARRATIVE: CASE EVENT DATE: 20170720
